FAERS Safety Report 23598704 (Version 1)
Quarter: 2024Q1

REPORT INFORMATION
  Report Type: Report from Study
  Country: US (occurrence: US)
  Receive Date: 20240306
  Receipt Date: 20240306
  Transmission Date: 20240409
  Serious: Yes (Other)
  Sender: FDA-Public Use
  Company Number: US-ABBVIE-5664857

PATIENT
  Sex: Female

DRUGS (1)
  1. SKYRIZI [Suspect]
     Active Substance: RISANKIZUMAB-RZAA
     Indication: Crohn^s disease
     Route: 058
     Dates: start: 20230713

REACTIONS (4)
  - Malignant melanoma [Recovered/Resolved]
  - Bowel movement irregularity [Not Recovered/Not Resolved]
  - Crohn^s disease [Recovered/Resolved]
  - Pancreatic disorder [Not Recovered/Not Resolved]
